FAERS Safety Report 6570419-1 (Version None)
Quarter: 2010Q1

REPORT INFORMATION
  Report Type: 
  Country: None (occurrence: None)
  Receive Date: 20100204
  Receipt Date: 20090318
  Transmission Date: 20100710
  Serious: No
  Sender: FDA-Public Use
  Company Number: A0774022A

PATIENT
  Age: 42 Year
  Sex: Female

DRUGS (4)
  1. ARIXTRA [Suspect]
     Indication: ANTIPHOSPHOLIPID SYNDROME
     Dosage: 2.5MG PER DAY
     Route: 058
  2. VITAMINS [Concomitant]
  3. SYNTHROID [Concomitant]
  4. LOVENOX [Concomitant]

REACTIONS (1)
  - DRUG EXPOSURE DURING PREGNANCY [None]
